FAERS Safety Report 7535212-1 (Version None)
Quarter: 2011Q2

REPORT INFORMATION
  Report Type: 
  Country: None (occurrence: None)
  Receive Date: 20110609
  Receipt Date: 20071119
  Transmission Date: 20111010
  Serious: Yes (Death)
  Sender: FDA-Public Use
  Company Number: PHHO2007CL10492

PATIENT
  Age: 63 Year
  Sex: Male

DRUGS (4)
  1. RISPERDAL [Concomitant]
     Dosage: 1.5 MG/DAILY
  2. CHLORPROMAZINE [Concomitant]
     Dosage: 25 MG/DAILY
  3. CLOZAPINE [Suspect]
     Indication: SCHIZOPHRENIA
     Dosage: 100 MG, 7QD
     Route: 048
     Dates: start: 20001001
  4. TONARIL [Concomitant]
     Dosage: 4 MG/DAILY

REACTIONS (1)
  - DEATH [None]
